FAERS Safety Report 22203853 (Version 1)
Quarter: 2023Q2

REPORT INFORMATION
  Report Type: Spontaneous
  Country: IT (occurrence: IT)
  Receive Date: 20230412
  Receipt Date: 20230412
  Transmission Date: 20230722
  Serious: Yes (Death, Hospitalization, Other)
  Sender: FDA-Public Use
  Company Number: IT-CELGENE-ITA-20201007380

PATIENT
  Age: 81 Year
  Sex: Male

DRUGS (20)
  1. DEXAMETHASONE [Suspect]
     Active Substance: DEXAMETHASONE
     Indication: Plasma cell myeloma
     Dosage: 10 MILLIGRAM
     Route: 048
     Dates: start: 20200128, end: 20200218
  2. DEXAMETHASONE [Suspect]
     Active Substance: DEXAMETHASONE
     Dosage: WAS THE DOSE ADMINISTERED: YES, WAS THE DOSE ADJUSTED FROM PREVIOUS/FIRST DOSE: NO
     Route: 048
     Dates: start: 20200415, end: 20200429
  3. DEXAMETHASONE [Suspect]
     Active Substance: DEXAMETHASONE
     Dosage: WAS THE DOSE ADMINISTERED: NO, REASON IF DOSE WAS NOT ADMINISTERED: REST PERIOD
     Route: 065
     Dates: start: 20200630, end: 20200709
  4. DEXAMETHASONE [Suspect]
     Active Substance: DEXAMETHASONE
     Dosage: WAS THE DOSE ADMINISTERED: NO, REASON IF DOSE WAS NOT ADMINISTERED: REST PERIOD
     Route: 065
     Dates: start: 20200430, end: 20200511
  5. DEXAMETHASONE [Suspect]
     Active Substance: DEXAMETHASONE
     Dosage: WAS THE DOSE ADMINISTERED: YES, WAS THE DOSE ADJUSTED FROM PREVIOUS/FIRST DOSE: NO
     Route: 048
     Dates: start: 20200512, end: 20200602
  6. DEXAMETHASONE [Suspect]
     Active Substance: DEXAMETHASONE
     Dosage: WAS THE DOSE ADMINISTERED: YES, WAS THE DOSE ADJUSTED FROM PREVIOUS/FIRST DOSE: NO
     Route: 048
     Dates: start: 20200710, end: 20200710
  7. DEXAMETHASONE [Suspect]
     Active Substance: DEXAMETHASONE
     Dosage: WAS THE DOSE ADMINISTERED: YES, WAS THE DOSE ADJUSTED FROM PREVIOUS/FIRST DOSE: NO
     Route: 048
     Dates: start: 20200608, end: 20200629
  8. DEXAMETHASONE [Suspect]
     Active Substance: DEXAMETHASONE
     Dosage: 20 MILLIGRAM
     Route: 048
     Dates: start: 20200306, end: 20200327
  9. DEXAMETHASONE [Suspect]
     Active Substance: DEXAMETHASONE
     Dosage: 20 MILLIGRAM
     Route: 048
     Dates: start: 20200408, end: 20200408
  10. DEXAMETHASONE [Suspect]
     Active Substance: DEXAMETHASONE
     Dosage: WAS THE DOSE ADMINISTERED: NO, REASON IF DOSE WAS NOT ADMINISTERED: REST PERIOD
     Route: 065
     Dates: start: 20200603, end: 20200607
  11. REVLIMID [Suspect]
     Active Substance: LENALIDOMIDE
     Indication: Plasma cell myeloma
     Dosage: DOSE ADJUSTED FROM PREVIOUS/FIRST DOSE: NO
     Route: 048
     Dates: start: 20200409, end: 20200428
  12. REVLIMID [Suspect]
     Active Substance: LENALIDOMIDE
     Dosage: 10 MILLIGRAM
     Route: 048
     Dates: start: 20200408, end: 20200408
  13. REVLIMID [Suspect]
     Active Substance: LENALIDOMIDE
     Dosage: 10 MILLIGRAM
     Route: 048
     Dates: start: 20200128, end: 20200217
  14. REVLIMID [Suspect]
     Active Substance: LENALIDOMIDE
     Dosage: 10 MILLIGRAM
     Route: 048
     Dates: start: 20200306, end: 20200326
  15. REVLIMID [Suspect]
     Active Substance: LENALIDOMIDE
     Dosage: WAS THE DOSE ADMINISTERED: NO-REASON IF DOSE WAS NOT ADMINISTERED: REST PERIOD
     Route: 065
     Dates: start: 20200429, end: 20200511
  16. REVLIMID [Suspect]
     Active Substance: LENALIDOMIDE
     Dosage: WAS THE DOSE ADMINISTERED: NO-REASON IF DOSE WAS NOT ADMINISTERED: REST PERIOD
     Route: 065
     Dates: start: 20200629, end: 20200709
  17. REVLIMID [Suspect]
     Active Substance: LENALIDOMIDE
     Dosage: DOSE ADJUSTED FROM PREVIOUS/FIRST DOSE: NO, WAS THE DOSE ADMINISTERED: YES
     Route: 048
     Dates: start: 20200512, end: 20200601
  18. REVLIMID [Suspect]
     Active Substance: LENALIDOMIDE
     Dosage: WAS THE DOSE ADMINISTERED: NO-REASON IF DOSE WAS NOT ADMINISTERED: REST PERIOD
     Route: 065
     Dates: start: 20200602, end: 20200607
  19. REVLIMID [Suspect]
     Active Substance: LENALIDOMIDE
     Dosage: DOSE ADJUSTED FROM PREVIOUS/FIRST DOSE: NO, WAS THE DOSE ADMINISTERED: YES
     Route: 048
     Dates: start: 20200608, end: 20200628
  20. REVLIMID [Suspect]
     Active Substance: LENALIDOMIDE
     Dosage: DOSE ADJUSTED FROM PREVIOUS/FIRST DOSE: NO, WAS THE DOSE ADMINISTERED: YES
     Route: 048
     Dates: start: 20200710, end: 20200710

REACTIONS (3)
  - Death [Fatal]
  - Lung adenocarcinoma [Not Recovered/Not Resolved]
  - Left ventricular failure [Recovered/Resolved]

NARRATIVE: CASE EVENT DATE: 20200912
